FAERS Safety Report 8927862 (Version 1)
Quarter: 2012Q4

REPORT INFORMATION
  Report Type: 
  Country: US (occurrence: US)
  Receive Date: 20121127
  Receipt Date: 20121127
  Transmission Date: 20130627
  Serious: No
  Sender: FDA-Public Use
  Company Number: US-B.I. PHARMACEUTICALS,INC./RIDGEFIELD-2012-BI-01252BP

PATIENT
  Sex: Female
  Weight: 61 kg

DRUGS (6)
  1. PRADAXA [Suspect]
     Indication: ATRIAL FIBRILLATION
     Dosage: 300 mg
     Route: 048
     Dates: start: 201108, end: 201209
  2. ZESTRIL [Concomitant]
     Indication: HYPERTENSION
     Dosage: 2.5 mg
     Route: 048
     Dates: start: 2010
  3. BUMEX [Concomitant]
     Indication: DIURETIC THERAPY
     Dosage: 1 mg
     Route: 048
     Dates: start: 2009
  4. K DUR [Concomitant]
     Indication: SUPPLEMENTATION THERAPY
     Dosage: 20 mg
     Route: 048
     Dates: start: 2010
  5. PRAVACOL [Concomitant]
     Indication: BLOOD CHOLESTEROL INCREASED
     Dosage: 20 mg
     Route: 048
     Dates: start: 2010
  6. TOPROL XL [Concomitant]
     Indication: HYPERTENSION
     Dosage: 25 mg
     Route: 048
     Dates: start: 2010

REACTIONS (2)
  - Diarrhoea [Recovered/Resolved]
  - Haemorrhoids [Recovered/Resolved]
